FAERS Safety Report 16679477 (Version 4)
Quarter: 2019Q3

REPORT INFORMATION
  Report Type: Spontaneous
  Country: DE (occurrence: DE)
  Receive Date: 20190807
  Receipt Date: 20190909
  Transmission Date: 20191004
  Serious: Yes (Other)
  Sender: FDA-Public Use
  Company Number: DE-PFIZER INC-2019308002

PATIENT
  Age: 54 Year
  Sex: Female

DRUGS (2)
  1. PREGABALINE PFIZER [Suspect]
     Active Substance: PREGABALIN
     Indication: DEPRESSION
  2. PREGABALINE PFIZER [Suspect]
     Active Substance: PREGABALIN
     Indication: ANXIETY
     Dosage: UNK

REACTIONS (10)
  - Nausea [Unknown]
  - Chills [Unknown]
  - Drug withdrawal syndrome [Unknown]
  - Haematemesis [Unknown]
  - Hyperhidrosis [Unknown]
  - Vomiting [Unknown]
  - Drug hypersensitivity [Unknown]
  - Pain [Unknown]
  - Anal haemorrhage [Unknown]
  - Diarrhoea [Unknown]

NARRATIVE: CASE EVENT DATE: 201907
